FAERS Safety Report 20700966 (Version 1)
Quarter: 2022Q2

REPORT INFORMATION
  Report Type: Spontaneous
  Country: US (occurrence: US)
  Receive Date: 20220412
  Receipt Date: 20220412
  Transmission Date: 20220721
  Serious: No
  Sender: FDA-Public Use
  Company Number: US-ABBVIE-22K-163-4264880-00

PATIENT
  Age: 62 Year
  Sex: Female
  Weight: 108.96 kg

DRUGS (3)
  1. LUPRON [Suspect]
     Active Substance: LEUPROLIDE ACETATE
     Indication: Prostate cancer
     Route: 030
     Dates: start: 202110
  2. FLOMAX [Concomitant]
     Active Substance: TAMSULOSIN HYDROCHLORIDE
     Indication: Urinary retention
  3. JANSSEN COVID-19 VACCINE [Concomitant]
     Active Substance: AD26.COV2.S
     Indication: COVID-19 immunisation
     Dosage: MANUF: JOHNSON AND JOHNSON
     Route: 030
     Dates: start: 202108, end: 202108

REACTIONS (1)
  - Skin odour abnormal [Not Recovered/Not Resolved]

NARRATIVE: CASE EVENT DATE: 20220101
